FAERS Safety Report 8854635 (Version 2)
Quarter: 2012Q4

REPORT INFORMATION
  Report Type: Report from Study
  Country: CA (occurrence: CA)
  Receive Date: 20121023
  Receipt Date: 20121102
  Transmission Date: 20130627
  Serious: Yes (Other)
  Sender: FDA-Public Use
  Company Number: CA-JNJFOC-20121010460

PATIENT
  Sex: Female
  Weight: 72 kg

DRUGS (2)
  1. REMICADE [Suspect]
     Indication: PSORIATIC ARTHROPATHY
     Route: 042
     Dates: start: 20120522, end: 20121022
  2. REMICADE [Suspect]
     Indication: RHEUMATOID ARTHRITIS
     Route: 042
     Dates: start: 20120522, end: 20121022

REACTIONS (6)
  - Oesophagitis [Unknown]
  - Abasia [Unknown]
  - Hypokinesia [Unknown]
  - Onychomycosis [Unknown]
  - Candidiasis [Unknown]
  - Muscular weakness [Unknown]
